FAERS Safety Report 5070252-6 (Version None)
Quarter: 2006Q3

REPORT INFORMATION
  Report Type: 
  Country: None (occurrence: None)
  Receive Date: 20060803
  Receipt Date: 20060628
  Transmission Date: 20061208
  Serious: Yes (Life-Threatening, Hospitalization, Disabling)
  Sender: FDA-Public Use
  Company Number: JP-MERCK-0607USA00079

PATIENT
  Age: 49 Year
  Sex: Male
  Weight: 57 kg

DRUGS (12)
  1. SINGULAIR [Suspect]
     Indication: ASTHMA
     Route: 048
     Dates: start: 20060215
  2. ALFACALCIDOL [Concomitant]
     Indication: OSTEOPOROSIS
     Route: 048
     Dates: start: 20010529
  3. UNIPHYL [Concomitant]
     Indication: ASTHMA
     Route: 048
     Dates: start: 20010529
  4. KETOBUN-A [Concomitant]
     Indication: HYPERURICAEMIA
     Route: 048
     Dates: start: 20010529
  5. PREDNISOLONE [Concomitant]
     Indication: ASTHMA
     Route: 065
     Dates: start: 20010529
  6. NORVASC [Concomitant]
     Indication: HYPERTENSION
     Route: 048
     Dates: start: 20010529
  7. BLOPRESS [Concomitant]
     Indication: HYPERTENSION
     Route: 048
     Dates: start: 20040402
  8. OMEPRAL [Concomitant]
     Indication: REFLUX OESOPHAGITIS
     Route: 048
     Dates: start: 20050511
  9. QVAR 40 [Concomitant]
     Indication: ASTHMA
     Route: 055
     Dates: start: 20030313
  10. SEREVENT [Concomitant]
     Indication: ASTHMA
     Route: 055
     Dates: start: 20021209
  11. FLUNASE (FLUTICASONE PROPIONATE) [Concomitant]
     Indication: RHINITIS ALLERGIC
     Route: 065
     Dates: start: 20030723
  12. PULMICORT [Concomitant]
     Indication: ASTHMA
     Route: 055
     Dates: start: 20021013

REACTIONS (4)
  - ALANINE AMINOTRANSFERASE INCREASED [None]
  - ALLERGIC GRANULOMATOUS ANGIITIS [None]
  - ASPARTATE AMINOTRANSFERASE INCREASED [None]
  - NEURITIS [None]
